FAERS Safety Report 21523277 (Version 2)
Quarter: 2023Q1

REPORT INFORMATION
  Report Type: Report from Study
  Country: US (occurrence: US)
  Receive Date: 20221029
  Receipt Date: 20230130
  Transmission Date: 20230417
  Serious: No
  Sender: FDA-Public Use
  Company Number: US-ABBVIE-4181254

PATIENT
  Age: 64 Year
  Sex: Male
  Weight: 74 kg

DRUGS (6)
  1. VENCLEXTA [Suspect]
     Active Substance: VENETOCLAX
     Indication: Chronic lymphocytic leukaemia
     Dosage: DAILY
     Route: 048
     Dates: start: 20221222
  2. VENCLEXTA [Suspect]
     Active Substance: VENETOCLAX
     Indication: Chronic lymphocytic leukaemia
     Route: 048
  3. METRONIDAZOLE [Concomitant]
     Active Substance: METRONIDAZOLE
     Indication: Rosacea
     Dosage: 5 MG, 2 DAYS
     Dates: start: 20220930
  4. CICLOPIROX [Concomitant]
     Active Substance: CICLOPIROX
     Indication: Rosacea
     Dosage: FILM, 2 WEEKS
     Dates: start: 20220930
  5. SOOLANTRA [Concomitant]
     Active Substance: IVERMECTIN
     Indication: Rosacea
     Dosage: 1 DAY
     Dates: start: 20220930
  6. FINASTERIDE [Concomitant]
     Active Substance: FINASTERIDE
     Indication: Alopecia
     Dosage: 1 MILLIGRAM, 1 DAY
     Route: 048
     Dates: start: 20100101

REACTIONS (1)
  - Nasopharyngitis [Recovered/Resolved]

NARRATIVE: CASE EVENT DATE: 20221015
